FAERS Safety Report 7723498-X (Version None)
Quarter: 2011Q3

REPORT INFORMATION
  Report Type: 
  Country: None (occurrence: None)
  Receive Date: 20110901
  Receipt Date: 20110830
  Transmission Date: 20111222
  Serious: Yes (Other)
  Sender: FDA-Public Use
  Company Number: US-PFIZER INC-2011185692

PATIENT
  Sex: Female
  Weight: 68.934 kg

DRUGS (5)
  1. PROVENTIL [Concomitant]
  2. SIMVASTATIN [Concomitant]
  3. CHANTIX [Suspect]
     Dosage: 1 MG, 2X/DAY
     Route: 048
     Dates: start: 20110101, end: 20110701
  4. CHANTIX [Suspect]
     Indication: SMOKING CESSATION THERAPY
     Dosage: 0.5 MG, DAILY
     Route: 048
     Dates: start: 20110416, end: 20110422
  5. ATROVENT [Concomitant]

REACTIONS (2)
  - RASH [None]
  - MYOCARDIAL INFARCTION [None]
